FAERS Safety Report 5350806-X (Version None)
Quarter: 2007Q2

REPORT INFORMATION
  Report Type: 
  Country: None (occurrence: None)
  Receive Date: 20070606
  Receipt Date: 20070606
  Transmission Date: 20071010
  Serious: Yes (Hospitalization)
  Sender: FDA-Public Use
  Company Number: None

PATIENT
  Age: 50 Year
  Sex: Male
  Weight: 69 kg

DRUGS (3)
  1. VANCOMYCIN [Suspect]
     Indication: CULTURE WOUND POSITIVE
     Dosage: IV
     Route: 042
  2. ATENOLOL [Concomitant]
  3. CELEXA [Concomitant]

REACTIONS (5)
  - HAEMODIALYSIS [None]
  - NEPHRITIS INTERSTITIAL [None]
  - PYREXIA [None]
  - RED MAN SYNDROME [None]
  - RENAL FAILURE ACUTE [None]
